FAERS Safety Report 25966022 (Version 1)
Quarter: 2025Q4

REPORT INFORMATION
  Report Type: Report from Study
  Country: BR (occurrence: BR)
  Receive Date: 20251028
  Receipt Date: 20251028
  Transmission Date: 20260117
  Serious: Yes (Other)
  Sender: JOHNSON AND JOHNSON
  Company Number: BR-JNJFOC-20251025171

PATIENT
  Age: 4 Decade
  Sex: Male
  Weight: 80 kg

DRUGS (1)
  1. INFLIXIMAB [Suspect]
     Active Substance: INFLIXIMAB
     Indication: Crohn^s disease
     Dosage: LAST INFUSION: 20-OCT-2025
     Route: 041
     Dates: start: 20240122

REACTIONS (5)
  - Ileal stenosis [Unknown]
  - Crohn^s disease [Not Recovered/Not Resolved]
  - Weight increased [Unknown]
  - Fistula [Not Recovered/Not Resolved]
  - Therapeutic response decreased [Unknown]
